FAERS Safety Report 25061668 (Version 1)
Quarter: 2025Q1

REPORT INFORMATION
  Report Type: Spontaneous
  Country: CA (occurrence: CA)
  Receive Date: 20250311
  Receipt Date: 20250311
  Transmission Date: 20250409
  Serious: Yes (Hospitalization)
  Sender: ROCHE
  Company Number: CA-002147023-NVSC2025CA037146

PATIENT
  Age: 58 Year
  Sex: Female

DRUGS (1)
  1. OMALIZUMAB [Suspect]
     Active Substance: OMALIZUMAB
     Indication: Asthma
     Dosage: 375 MG, BIW (1 EVERY 2 WEEKS)
     Route: 050

REACTIONS (4)
  - Scar [Recovering/Resolving]
  - Femur fracture [Recovering/Resolving]
  - Hip fracture [Recovering/Resolving]
  - Osteoporosis [Recovering/Resolving]
